FAERS Safety Report 8012874-6 (Version None)
Quarter: 2011Q4

REPORT INFORMATION
  Report Type: 
  Country: None (occurrence: None)
  Receive Date: 20111229
  Receipt Date: 20111222
  Transmission Date: 20120403
  Serious: Yes (Other)
  Sender: FDA-Public Use
  Company Number: US-JNJFOC-20111211813

PATIENT
  Age: 89 Year
  Sex: Female

DRUGS (2)
  1. LISINOPRIL [Concomitant]
     Indication: HYPERTENSION
     Route: 065
  2. LISTERINE ORIGINAL [Suspect]
     Indication: DENTAL DISORDER PROPHYLAXIS
     Dosage: AT LEAST ONCE PER NIGHT, FOR OVER A YEAR
     Route: 048

REACTIONS (3)
  - PRODUCT QUALITY ISSUE [None]
  - BONE DISORDER [None]
  - WRONG TECHNIQUE IN DRUG USAGE PROCESS [None]
